FAERS Safety Report 19711473 (Version 1)
Quarter: 2021Q3

REPORT INFORMATION
  Report Type: Spontaneous
  Country: DE (occurrence: DE)
  Receive Date: 20210817
  Receipt Date: 20210817
  Transmission Date: 20211014
  Serious: Yes (Other)
  Sender: FDA-Public Use
  Company Number: DE-INCYTE CORPORATION-2021IN007299

PATIENT

DRUGS (2)
  1. JAKAVI [Suspect]
     Active Substance: RUXOLITINIB
     Indication: MYELOFIBROSIS
     Dosage: 5 MG
     Route: 065
  2. EPOETIN ALFA [Suspect]
     Active Substance: ERYTHROPOIETIN
     Indication: ANAEMIA
     Dosage: UNK, Q2W (40,000)
     Route: 065

REACTIONS (10)
  - Aphthous ulcer [Unknown]
  - Weight decreased [Unknown]
  - Blister [Recovered/Resolved]
  - Necrosis [Unknown]
  - Pain [Unknown]
  - Oral mucosal blistering [Unknown]
  - Tongue blistering [Unknown]
  - Splenomegaly [Not Recovered/Not Resolved]
  - Drug ineffective [Not Recovered/Not Resolved]
  - Anaemia [Unknown]

NARRATIVE: CASE EVENT DATE: 20210804
